FAERS Safety Report 6170424-3 (Version None)
Quarter: 2009Q2

REPORT INFORMATION
  Report Type: 
  Country: None (occurrence: None)
  Receive Date: 20090428
  Receipt Date: 20090421
  Transmission Date: 20091009
  Serious: Yes (Life-Threatening, Hospitalization, Other)
  Sender: FDA-Public Use
  Company Number: US-ELI_LILLY_AND_COMPANY-US200904004691

PATIENT
  Sex: Female

DRUGS (6)
  1. HUMALOG [Suspect]
     Dosage: 5 U, 3/D
  2. HUMALOG [Suspect]
     Dosage: 8 U, 3/D
  3. HUMALOG [Suspect]
     Dosage: 3 U, UNK
  4. HUMALOG [Suspect]
     Dosage: 2 U, UNK
  5. HUMALOG [Suspect]
     Dosage: 7 U, UNK
  6. LANTUS [Concomitant]
     Indication: TYPE 1 DIABETES MELLITUS
     Dosage: 18 U, DAILY (1/D)

REACTIONS (11)
  - ANXIETY [None]
  - BLOOD GLUCOSE INCREASED [None]
  - COMA [None]
  - DRUG INEFFECTIVE [None]
  - FALL [None]
  - GLYCOSYLATED HAEMOGLOBIN INCREASED [None]
  - HEAD INJURY [None]
  - INTRACRANIAL PRESSURE INCREASED [None]
  - MECHANICAL VENTILATION [None]
  - MEMORY IMPAIRMENT [None]
  - VISUAL ACUITY REDUCED [None]
